FAERS Safety Report 16898809 (Version 2)
Quarter: 2020Q1

REPORT INFORMATION
  Report Type: Spontaneous
  Country: US (occurrence: US)
  Receive Date: 20191009
  Receipt Date: 20200121
  Transmission Date: 20200409
  Serious: No
  Sender: FDA-Public Use
  Company Number: US-PFIZER INC-2019430705

PATIENT
  Age: 77 Year
  Sex: Female
  Weight: 56.69 kg

DRUGS (3)
  1. IBRANCE [Suspect]
     Active Substance: PALBOCICLIB
     Indication: BREAST CANCER FEMALE
     Dosage: 125 MG, UNK
  2. IBRANCE [Suspect]
     Active Substance: PALBOCICLIB
     Dosage: 75 MG, CYCLIC [75 MG 1 WEEK ON/1 WEEK OFF]
     Dates: start: 20200107
  3. IBRANCE [Suspect]
     Active Substance: PALBOCICLIB
     Dosage: 75 MG, CYCLIC [3 WEEKS ON/1 WEEK OFF]
     Dates: start: 201704

REACTIONS (3)
  - Speech disorder [Unknown]
  - White blood cell count decreased [Not Recovered/Not Resolved]
  - Asthenia [Not Recovered/Not Resolved]
